FAERS Safety Report 6457045-X (Version None)
Quarter: 2009Q4

REPORT INFORMATION
  Report Type: 
  Country: None (occurrence: None)
  Receive Date: 20091125
  Receipt Date: 20091118
  Transmission Date: 20100525
  Serious: Yes (Other)
  Sender: FDA-Public Use
  Company Number: A0817737A

PATIENT
  Age: 66 Year
  Sex: Female

DRUGS (10)
  1. ADVAIR DISKUS 100/50 [Suspect]
     Dosage: 1PUFF TWICE PER DAY
     Route: 055
     Dates: start: 20091016, end: 20091021
  2. DIOVAN [Concomitant]
  3. AMLODIPINE [Concomitant]
  4. OMEPRAZOLE [Concomitant]
  5. LEVOXYL [Concomitant]
  6. METFORMIN HCL [Concomitant]
  7. LEXAPRO [Concomitant]
  8. PLAVIX [Concomitant]
  9. SIMVASTATIN [Concomitant]
  10. ZOLPIDEM [Concomitant]

REACTIONS (3)
  - HEART RATE INCREASED [None]
  - MEDICATION ERROR [None]
  - MYOCARDIAL INFARCTION [None]
